FAERS Safety Report 6428000-0 (Version None)
Quarter: 2009Q4

REPORT INFORMATION
  Report Type: 
  Country: None (occurrence: None)
  Receive Date: 20091105
  Receipt Date: 20091027
  Transmission Date: 20100525
  Serious: Yes (Other)
  Sender: FDA-Public Use
  Company Number: US-AMGEN-US335819

PATIENT
  Sex: Male
  Weight: 95.3 kg

DRUGS (5)
  1. NPLATE [Suspect]
     Indication: IDIOPATHIC THROMBOCYTOPENIC PURPURA
     Route: 058
     Dates: start: 20081126, end: 20090605
  2. SIMVASTATIN [Concomitant]
     Route: 048
  3. ZETIA [Concomitant]
     Route: 065
  4. ATENOLOL [Concomitant]
     Route: 048
  5. LASIX [Concomitant]
     Route: 065

REACTIONS (2)
  - PLATELET COUNT DECREASED [None]
  - THERAPEUTIC RESPONSE DECREASED [None]
